FAERS Safety Report 8849349 (Version 2)
Quarter: 2012Q4

REPORT INFORMATION
  Report Type: 
  Country: CN (occurrence: CN)
  Receive Date: 20121017
  Receipt Date: 20121025
  Transmission Date: 20130627
  Serious: Yes (Other)
  Sender: FDA-Public Use
  Company Number: CN-ASTRAZENECA-2012SE77630

PATIENT

DRUGS (3)
  1. PULMICORT RESPULES [Suspect]
     Route: 055
  2. IPRATROPIUM BROMIDE [Concomitant]
     Route: 055
  3. SALBUTAMOL [Concomitant]
     Route: 055

REACTIONS (2)
  - Bronchospasm [Unknown]
  - Discomfort [Unknown]
